FAERS Safety Report 9587066 (Version 2)
Quarter: 2013Q4

REPORT INFORMATION
  Report Type: Spontaneous
  Country: US (occurrence: US)
  Receive Date: 20131003
  Receipt Date: 20131016
  Transmission Date: 20140711
  Serious: No
  Sender: FDA-Public Use
  Company Number: US-PFIZER INC-2013281642

PATIENT
  Age: 62 Year
  Sex: Female
  Weight: 108 kg

DRUGS (4)
  1. LYRICA [Suspect]
     Indication: PAIN IN EXTREMITY
     Dosage: 75 MG, 3X/DAY
     Dates: start: 201306
  2. LYRICA [Suspect]
     Indication: HYPOAESTHESIA
  3. GLUCOPHAGE [Concomitant]
     Indication: DIABETES MELLITUS
     Dosage: 1000 MG (2 TABLETS OF 500 MG), 2X/DAY
  4. DIGOXIN [Concomitant]
     Indication: CARDIAC DISORDER
     Dosage: 0.125 MG, 1X/DAY
     Dates: start: 2010

REACTIONS (2)
  - Off label use [Not Recovered/Not Resolved]
  - Herpes zoster [Recovering/Resolving]
